FAERS Safety Report 19323986 (Version 1)
Quarter: 2021Q2

REPORT INFORMATION
  Report Type: Report from Study
  Country: US (occurrence: US)
  Receive Date: 20210528
  Receipt Date: 20210528
  Transmission Date: 20210717
  Serious: Yes (Hospitalization)
  Sender: FDA-Public Use
  Company Number: US-MYLANLABS-2021M1030717

PATIENT
  Age: 3 Year
  Sex: Male
  Weight: 18.1 kg

DRUGS (2)
  1. ADENOSINE. [Suspect]
     Active Substance: ADENOSINE
     Indication: SUPRAVENTRICULAR TACHYCARDIA
     Dosage: TID GIVEN THREE TIMES
     Route: 065
  2. LEVOSALBUTAMOL [Suspect]
     Active Substance: LEVALBUTEROL
     Indication: DYSPNOEA
     Dosage: TWO DOSES AT HOME
     Route: 065

REACTIONS (2)
  - Supraventricular tachycardia [Recovered/Resolved]
  - Drug ineffective [Unknown]
